FAERS Safety Report 8059027-3 (Version None)
Quarter: 2012Q1

REPORT INFORMATION
  Report Type: 
  Country: None (occurrence: None)
  Receive Date: 20120120
  Receipt Date: 20110425
  Transmission Date: 20120608
  Serious: No
  Sender: FDA-Public Use
  Company Number: US-BAUSCH-2011BL002686

PATIENT
  Age: 90 Year
  Sex: Female

DRUGS (3)
  1. ALAWAY [Suspect]
     Indication: LACRIMATION INCREASED
     Route: 047
     Dates: start: 20110420, end: 20110423
  2. AVANDIA [Concomitant]
     Indication: DIABETES MELLITUS
     Route: 048
  3. ALAWAY [Suspect]
     Indication: DRY EYE
     Route: 047
     Dates: start: 20110420, end: 20110423

REACTIONS (1)
  - OCULAR HYPERAEMIA [None]
